FAERS Safety Report 23027443 (Version 1)
Quarter: 2023Q4

REPORT INFORMATION
  Report Type: Spontaneous
  Country: TW (occurrence: TW)
  Receive Date: 20231004
  Receipt Date: 20231004
  Transmission Date: 20240110
  Serious: Yes (Other)
  Sender: FDA-Public Use
  Company Number: TW-MYLANLABS-2023M1104448

PATIENT
  Sex: Male

DRUGS (1)
  1. CLOZAPINE [Suspect]
     Active Substance: CLOZAPINE
     Indication: Schizophrenia
     Dosage: UNK, 100-200 MG, 1DAY
     Route: 065

REACTIONS (3)
  - Salivary hypersecretion [Recovering/Resolving]
  - Loss of personal independence in daily activities [Unknown]
  - Social problem [Unknown]
